FAERS Safety Report 5740249-9 (Version None)
Quarter: 2008Q2

REPORT INFORMATION
  Report Type: 
  Country: None (occurrence: None)
  Receive Date: 20080516
  Receipt Date: 20080505
  Transmission Date: 20081010
  Serious: Yes (Hospitalization)
  Sender: FDA-Public Use
  Company Number: US-JNJFOC-20080501346

PATIENT
  Sex: Female

DRUGS (14)
  1. DURAGESIC-100 [Suspect]
     Route: 062
  2. DURAGESIC-100 [Suspect]
     Route: 062
  3. DURAGESIC-100 [Suspect]
     Indication: PAIN
     Dosage: TWO 12.5 UG PATCHES
     Route: 062
  4. FENTANYL TRANSDERMAL SYSTEM [Suspect]
     Indication: PAIN
     Route: 062
  5. PRILOSEC [Concomitant]
     Route: 048
  6. LASIX [Concomitant]
  7. FERROUS SULFATE TAB [Concomitant]
  8. ZANTAC [Concomitant]
     Route: 048
  9. MULTI-VITAMIN [Concomitant]
     Indication: MEDICAL DIET
     Route: 048
  10. POTASSIUM CHLORIDE [Concomitant]
  11. PREMARIN [Concomitant]
  12. ATENOLOL [Concomitant]
  13. MIRALAX [Concomitant]
     Route: 048
  14. NAMENDA [Concomitant]
     Route: 048

REACTIONS (4)
  - HOSPITALISATION [None]
  - INCORRECT DRUG ADMINISTRATION DURATION [None]
  - OVERDOSE [None]
  - THERAPEUTIC RESPONSE DECREASED [None]
